FAERS Safety Report 8083609-6 (Version None)
Quarter: 2012Q1

REPORT INFORMATION
  Report Type: 
  Country: None (occurrence: None)
  Receive Date: 20120127
  Receipt Date: 20110310
  Transmission Date: 20120608
  Serious: No
  Sender: FDA-Public Use
  Company Number: US-ABBOTT-11P-163-0710720-00

PATIENT
  Sex: Male

DRUGS (2)
  1. HUMIRA [Suspect]
     Indication: PSORIATIC ARTHROPATHY
     Dates: start: 20090101
  2. HUMIRA [Suspect]
     Indication: PSORIASIS

REACTIONS (2)
  - INJECTION SITE LACERATION [None]
  - INJECTION SITE HAEMORRHAGE [None]
